FAERS Safety Report 5482266-2 (Version None)
Quarter: 2007Q4

REPORT INFORMATION
  Report Type: 
  Country: None (occurrence: None)
  Receive Date: 20071011
  Receipt Date: 20071002
  Transmission Date: 20080405
  Serious: Yes (Hospitalization)
  Sender: FDA-Public Use
  Company Number: US-AMGEN-QUU246135

PATIENT
  Sex: Female

DRUGS (2)
  1. ENBREL [Suspect]
     Indication: RHEUMATOID ARTHRITIS
     Route: 058
     Dates: start: 19981201
  2. METHOTREXATE [Concomitant]
     Route: 048
     Dates: start: 19840101

REACTIONS (6)
  - ABDOMINAL INFECTION [None]
  - CHOLECYSTECTOMY [None]
  - CONTUSION [None]
  - LARGE INTESTINE PERFORATION [None]
  - RENAL CELL CARCINOMA STAGE UNSPECIFIED [None]
  - RHEUMATOID ARTHRITIS [None]
